FAERS Safety Report 19898244 (Version 1)
Quarter: 2021Q3

REPORT INFORMATION
  Report Type: Spontaneous
  Country: US (occurrence: US)
  Receive Date: 20210929
  Receipt Date: 20210929
  Transmission Date: 20211014
  Serious: Yes (Hospitalization)
  Sender: FDA-Public Use
  Company Number: US-ALVOGEN-2021-ALVOGEN-117592

PATIENT
  Sex: Female

DRUGS (3)
  1. DILTIAZEM. [Suspect]
     Active Substance: DILTIAZEM
     Indication: ATRIAL FIBRILLATION
     Dosage: 120 MG DAILY TO A SHORT ACTING?FORMULATION OF 30MG TWICE DAILY
  2. FLECAINIDE [Suspect]
     Active Substance: FLECAINIDE
     Indication: ATRIAL FIBRILLATION
  3. DIGOXIN. [Suspect]
     Active Substance: DIGOXIN
     Indication: ATRIAL FIBRILLATION

REACTIONS (6)
  - Dizziness [Unknown]
  - Toxicity to various agents [Unknown]
  - Orthostatic hypotension [Unknown]
  - Tachycardia [Unknown]
  - Ureterolithiasis [Unknown]
  - Blood creatinine increased [Unknown]
